FAERS Safety Report 11403262 (Version 3)
Quarter: 2015Q4

REPORT INFORMATION
  Report Type: Report from Study
  Country: US (occurrence: US)
  Receive Date: 20150821
  Receipt Date: 20151112
  Transmission Date: 20160304
  Serious: Yes (Other)
  Sender: FDA-Public Use
  Company Number: US-SA-2015SA125297

PATIENT
  Age: 73 Year
  Sex: Male
  Weight: 89.3 kg

DRUGS (4)
  1. NOVOLOG [Concomitant]
     Active Substance: INSULIN ASPART
     Dosage: DOSE:22 UNIT(S)
     Dates: start: 2003
  2. WARFARIN [Concomitant]
     Active Substance: WARFARIN
     Indication: MITRAL VALVE DISEASE
  3. LANTUS SOLOSTAR [Suspect]
     Active Substance: INSULIN GLARGINE
     Indication: DIABETES MELLITUS
     Dosage: ROUTE:SQ DOSE:44 UNIT(S)
     Route: 058
     Dates: start: 20030923, end: 20150930
  4. SOLOSTAR [Concomitant]
     Active Substance: DEVICE
     Dates: start: 2003

REACTIONS (4)
  - Blood iron decreased [Unknown]
  - Blood glucose increased [Unknown]
  - Cardiac failure congestive [Unknown]
  - Bladder operation [Unknown]
